FAERS Safety Report 15256934 (Version 2)
Quarter: 2018Q3

REPORT INFORMATION
  Report Type: Spontaneous
  Country: AR (occurrence: AR)
  Receive Date: 20180808
  Receipt Date: 20180825
  Transmission Date: 20181010
  Serious: Yes (Hospitalization, Other)
  Sender: FDA-Public Use
  Company Number: PHHY2018AR065935

PATIENT
  Sex: Female

DRUGS (4)
  1. TEGRETOL [Suspect]
     Active Substance: CARBAMAZEPINE
     Indication: SCHIZOPHRENIA
     Dosage: 400 OT, TID
     Route: 065
     Dates: end: 20180730
  2. LUMINAL [Concomitant]
     Active Substance: PHENOBARBITAL SODIUM
     Indication: PRODUCT USED FOR UNKNOWN INDICATION
     Dosage: UNK
     Route: 065
  3. PHENOBARBITAL. [Concomitant]
     Active Substance: PHENOBARBITAL
     Indication: PRODUCT USED FOR UNKNOWN INDICATION
     Route: 065
  4. QUETIAPINE. [Concomitant]
     Active Substance: QUETIAPINE
     Indication: PRODUCT USED FOR UNKNOWN INDICATION
     Route: 065

REACTIONS (9)
  - Seizure [Unknown]
  - Petechiae [Unknown]
  - Skin exfoliation [Unknown]
  - Contusion [Unknown]
  - Psoriasis [Unknown]
  - Head injury [Unknown]
  - Loss of consciousness [Not Recovered/Not Resolved]
  - Amnesia [Recovered/Resolved]
  - Feeling abnormal [Unknown]
